FAERS Safety Report 6183891-6 (Version None)
Quarter: 2009Q2

REPORT INFORMATION
  Report Type: 
  Country: None (occurrence: None)
  Receive Date: 20090508
  Receipt Date: 20090504
  Transmission Date: 20091009
  Serious: Yes (Life-Threatening, Hospitalization)
  Sender: FDA-Public Use
  Company Number: US-ROCHE-631251

PATIENT
  Sex: Male
  Weight: 104 kg

DRUGS (2)
  1. XELODA [Suspect]
     Indication: COLORECTAL CANCER
     Route: 048
  2. AVASTIN [Suspect]
     Indication: COLORECTAL CANCER
     Dosage: LAST AVASTIN WAS GIVEN ON 3 FEBRUARY 2009
     Route: 042

REACTIONS (1)
  - LARGE INTESTINE PERFORATION [None]
